FAERS Safety Report 9108327 (Version 1)
Quarter: 2013Q1

REPORT INFORMATION
  Report Type: Spontaneous
  Country: US (occurrence: US)
  Receive Date: 20130222
  Receipt Date: 20130222
  Transmission Date: 20140127
  Serious: No
  Sender: FDA-Public Use
  Company Number: US-PFIZER INC-2013066362

PATIENT
  Age: 75 Year
  Sex: Male
  Weight: 77 kg

DRUGS (1)
  1. GABAPENTIN [Suspect]
     Indication: NEUROPATHY PERIPHERAL
     Dosage: UNK
     Dates: start: 200809, end: 20130219

REACTIONS (5)
  - Pain in extremity [Unknown]
  - Paraesthesia [Unknown]
  - Burning sensation [Unknown]
  - Condition aggravated [Unknown]
  - Drug ineffective [Unknown]
